FAERS Safety Report 7062134-5 (Version None)
Quarter: 2010Q4

REPORT INFORMATION
  Report Type: 
  Country: None (occurrence: None)
  Receive Date: 20101026
  Receipt Date: 20101020
  Transmission Date: 20110411
  Serious: Yes (Other)
  Sender: FDA-Public Use
  Company Number: PHHY2010US71224

PATIENT
  Sex: Female

DRUGS (5)
  1. FANAPT [Suspect]
     Indication: BIPOLAR DISORDER
     Dosage: 8 MG, BID
     Route: 048
     Dates: start: 20100723
  2. FANAPT [Suspect]
     Dosage: 6 MG, BID
     Route: 048
     Dates: end: 20101007
  3. ZOLOFT [Concomitant]
  4. AMANTADINE [Concomitant]
     Dosage: 100 MG DAILY
     Dates: start: 20100819
  5. COGENTIN [Concomitant]
     Dosage: 2 MG DAILY
     Dates: start: 20100723, end: 20100819

REACTIONS (4)
  - FEELING ABNORMAL [None]
  - GAIT DISTURBANCE [None]
  - MUSCLE TWITCHING [None]
  - SEDATION [None]
